FAERS Safety Report 4356423-2 (Version None)
Quarter: 2004Q2

REPORT INFORMATION
  Report Type: 
  Country: None (occurrence: None)
  Receive Date: 20040506
  Receipt Date: 20040426
  Transmission Date: 20050107
  Serious: Yes (Life-Threatening, Hospitalization, Other)
  Sender: FDA-Public Use
  Company Number: 20040428357

PATIENT
  Sex: Female
  Weight: 67.1324 kg

DRUGS (10)
  1. LIPITOR [Suspect]
     Indication: BLOOD CHOLESTEROL INCREASED
     Dosage: 80 MG (DAILY), ORAL
     Route: 048
  2. RISEDRONIC ACID (RISEDRONIC ACID) [Concomitant]
  3. CONJUGATED ESTROGENS [Concomitant]
  4. PANTOPRAZOLE (PANTOPRAZOLE) [Concomitant]
  5. CLOPIDOGREL (CLOPIDOGREL) [Concomitant]
  6. ACETYLSALICYLIC ACID SRT [Concomitant]
  7. DONEPEZIL HCL [Concomitant]
  8. PAROXETINE HCL [Concomitant]
  9. RAMIPRIL [Concomitant]
  10. VALDECOXIB [Concomitant]

REACTIONS (5)
  - ARTERIAL RUPTURE [None]
  - FALL [None]
  - HAEMORRHAGE [None]
  - HAEMOTHORAX [None]
  - MYALGIA [None]
